FAERS Safety Report 22371436 (Version 2)
Quarter: 2023Q2

REPORT INFORMATION
  Report Type: Other
  Country: US (occurrence: US)
  Receive Date: 20230526
  Receipt Date: 20230616
  Transmission Date: 20230721
  Serious: No
  Sender: FDA-Public Use
  Company Number: US-TOLMAR, INC.-20US020157

PATIENT
  Sex: Male

DRUGS (2)
  1. ELIGARD [Suspect]
     Active Substance: LEUPROLIDE ACETATE
     Indication: Prostatic specific antigen increased
     Dosage: 22.5 MILLIGRAM, Q 3 MONTH
     Dates: start: 20180712
  2. ELIGARD [Suspect]
     Active Substance: LEUPROLIDE ACETATE
     Dosage: 22.5 MILLIGRAM, Q 3 MONTH
     Dates: start: 20191028

REACTIONS (1)
  - Off label use [Unknown]
